FAERS Safety Report 6463987-1 (Version None)
Quarter: 2009Q4

REPORT INFORMATION
  Report Type: 
  Country: None (occurrence: None)
  Receive Date: 20091201
  Receipt Date: 20091123
  Transmission Date: 20100525
  Serious: Yes (Other)
  Sender: FDA-Public Use
  Company Number: GB-ROCHE-671053

PATIENT
  Age: 6 Year
  Sex: Male

DRUGS (2)
  1. TAMIFLU [Suspect]
     Indication: PALLIATIVE CARE
     Dosage: DOSE NOT CHANGED.
     Route: 065
     Dates: start: 20091114
  2. VACCINE NOS [Suspect]
     Dosage: H1N1 VACCINE. DOSE NOT CHANGED.
     Route: 065
     Dates: start: 20091111

REACTIONS (3)
  - DEPRESSION [None]
  - FATIGUE [None]
  - INSOMNIA [None]
